FAERS Safety Report 19644300 (Version 1)
Quarter: 2021Q3

REPORT INFORMATION
  Report Type: Spontaneous
  Country: US (occurrence: US)
  Receive Date: 20210801
  Receipt Date: 20210801
  Transmission Date: 20211014
  Serious: No
  Sender: FDA-Public Use
  Company Number: US-ELI_LILLY_AND_COMPANY-US202107012690

PATIENT
  Age: 78 Year
  Sex: Female

DRUGS (4)
  1. NEXIUM [ESOMEPRAZOLE MAGNESIUM TRIHYDRATE] [Concomitant]
     Indication: NAUSEA
  2. TRESIBA [Concomitant]
     Active Substance: INSULIN DEGLUDEC
     Indication: DIABETES MELLITUS
  3. MYLANTA [CALCIUM CARBONATE] [Concomitant]
     Active Substance: CALCIUM CARBONATE
     Indication: NAUSEA
  4. TRULICITY [Suspect]
     Active Substance: DULAGLUTIDE
     Indication: DIABETES MELLITUS
     Dosage: 1.5 MG, OTHER (EVERY WEDNESDAY)
     Route: 058
     Dates: start: 2019

REACTIONS (4)
  - Impaired gastric emptying [Unknown]
  - Abdominal distension [Not Recovered/Not Resolved]
  - Nausea [Unknown]
  - Weight decreased [Unknown]

NARRATIVE: CASE EVENT DATE: 202104
